FAERS Safety Report 10952753 (Version 1)
Quarter: 2015Q1

REPORT INFORMATION
  Report Type: Spontaneous
  Country: US (occurrence: None)
  Receive Date: 20150226
  Receipt Date: 20150226
  Transmission Date: 20150721
  Serious: No
  Sender: FDA-Public Use
  Company Number: TAP2006Q00232

PATIENT
  Age: 80 Year
  Sex: Female

DRUGS (5)
  1. EXELON [Concomitant]
     Active Substance: RIVASTIGMINE TARTRATE
  2. PREVACID [Suspect]
     Active Substance: LANSOPRAZOLE
     Indication: PRODUCT USED FOR UNKNOWN INDICATION
     Route: 048
     Dates: start: 200511, end: 20060202
  3. PLAVIX [Concomitant]
     Active Substance: CLOPIDOGREL BISULFATE
  4. ATENOLOL. [Concomitant]
     Active Substance: ATENOLOL
  5. LIPITOR [Concomitant]
     Active Substance: ATORVASTATIN CALCIUM

REACTIONS (3)
  - Back pain [None]
  - Haemoglobin decreased [None]
  - Fatigue [None]

NARRATIVE: CASE EVENT DATE: 20060201
